FAERS Safety Report 21824903 (Version 1)
Quarter: 2023Q1

REPORT INFORMATION
  Report Type: Spontaneous
  Country: US (occurrence: US)
  Receive Date: 20230105
  Receipt Date: 20230105
  Transmission Date: 20230418
  Serious: Yes (Death, Hospitalization)
  Sender: FDA-Public Use
  Company Number: US-La Jolla Pharmaceutical-2023TP000003

PATIENT
  Age: 63 Year
  Sex: Male

DRUGS (2)
  1. XERAVA [Suspect]
     Active Substance: ERAVACYCLINE DIHYDROCHLORIDE
     Indication: Mycobacterium abscessus infection
     Route: 042
  2. XERAVA [Suspect]
     Active Substance: ERAVACYCLINE DIHYDROCHLORIDE
     Route: 042

REACTIONS (6)
  - Distributive shock [Fatal]
  - Pseudomonas infection [Fatal]
  - Blood fibrinogen decreased [Unknown]
  - Wound haemorrhage [Unknown]
  - Haemoglobin decreased [Unknown]
  - Off label use [Unknown]
